FAERS Safety Report 9239296 (Version 2)
Quarter: 2013Q2

REPORT INFORMATION
  Report Type: Spontaneous
  Country: US (occurrence: US)
  Receive Date: 20130418
  Receipt Date: 20130507
  Transmission Date: 20140414
  Serious: No
  Sender: FDA-Public Use
  Company Number: US-009507513-1304USA007423

PATIENT
  Age: 15 Year
  Sex: Male

DRUGS (2)
  1. CLARITIN-D 12 HOUR [Suspect]
     Indication: NASOPHARYNGITIS
     Dosage: 5 MG, ONCE
     Route: 048
  2. CLARITIN-D 12 HOUR [Suspect]
     Indication: SINUS CONGESTION

REACTIONS (1)
  - Drug ineffective [Unknown]
